FAERS Safety Report 20770507 (Version 1)
Quarter: 2022Q2

REPORT INFORMATION
  Report Type: Spontaneous
  Country: PL (occurrence: PL)
  Receive Date: 20220429
  Receipt Date: 20220429
  Transmission Date: 20220721
  Serious: Yes (Hospitalization, Disabling, Other)
  Sender: FDA-Public Use
  Company Number: None

PATIENT
  Age: 83 Year
  Sex: Female
  Weight: 91 kg

DRUGS (59)
  1. OMEPRAZOLE [Suspect]
     Active Substance: OMEPRAZOLE
     Indication: Product used for unknown indication
     Dosage: 20 MG, BID/1-1-0
     Route: 048
  2. ZOLPIDEM [Suspect]
     Active Substance: ZOLPIDEM TARTRATE
     Indication: Product used for unknown indication
     Dosage: 10 MILLIGRAM, 0-0-1
     Route: 065
  3. LAN DI [Concomitant]
     Indication: Hypertension
     Dosage: 1 DOSAGE FORM, QD (AMLODIPINE BESILATE: 50.0MG )
     Route: 048
  4. BETAHISTINE [Suspect]
     Active Substance: BETAHISTINE
     Dosage: 0-1-0
  5. LEVOTHYROXINE [Suspect]
     Active Substance: LEVOTHYROXINE
     Indication: Product used for unknown indication
     Dosage: 100 UG, QD/1-0-0
     Route: 065
  6. ALBUTEROL [Suspect]
     Active Substance: ALBUTEROL
     Indication: Product used for unknown indication
     Dosage: 100 PICOGRAM, AS NEEDED
     Route: 065
  7. CHOLECALCIFEROL [Interacting]
     Active Substance: CHOLECALCIFEROL
     Indication: Product used for unknown indication
  8. DABIGATRAN [Suspect]
     Active Substance: DABIGATRAN
     Indication: Product used for unknown indication
     Dosage: 110 MG, BID/DRUG LIST AT THE ADMISSION
     Route: 065
  9. LEVOTHYROXINE SODIUM [Suspect]
     Active Substance: LEVOTHYROXINE SODIUM
     Indication: Product used for unknown indication
     Dosage: 100 MICROGRAM DAILY;
     Route: 065
  10. METFORMIN [Concomitant]
     Active Substance: METFORMIN HYDROCHLORIDE
     Indication: Type 2 diabetes mellitus
     Dosage: UNK
  11. ALPRAZOLAM [Suspect]
     Active Substance: ALPRAZOLAM
     Indication: Product used for unknown indication
     Dosage: 2 DF, QD/0,5 MG, AD HOC, USUALLY
     Route: 065
  12. TRAMADOL HYDROCHLORIDE [Concomitant]
     Active Substance: TRAMADOL HYDROCHLORIDE
     Dosage: 2.0DF UNKNOWN
     Route: 065
  13. METOPROLOL [Suspect]
     Active Substance: METOPROLOL
  14. ZOLPIDEM [Suspect]
     Active Substance: ZOLPIDEM TARTRATE
     Indication: Product used for unknown indication
     Dosage: 100 MG, QD/0-0-1
     Route: 065
  15. TRAMADOL [Suspect]
     Active Substance: TRAMADOL
     Dosage: 50 MILLIGRAM, IN CASE OF PAIN
     Route: 065
  16. DONEPEZIL [Suspect]
     Active Substance: DONEPEZIL
     Indication: Product used for unknown indication
     Route: 065
  17. OMEPRAZOLE [Suspect]
     Active Substance: OMEPRAZOLE
     Indication: Product used for unknown indication
     Dosage: 100 MILLIGRAM, 1-1-0
     Route: 065
  18. OMEPRAZOLE [Suspect]
     Active Substance: OMEPRAZOLE
     Indication: Duodenal ulcer
  19. RAMIPRIL [Suspect]
     Active Substance: RAMIPRIL
     Indication: Cardiac failure
     Dosage: 5 MG, QD/1-0-0
     Route: 065
  20. NIKETHAMIDE [Interacting]
     Active Substance: NIKETHAMIDE
     Indication: Product used for unknown indication
     Dosage: INTERMITTENTLY
  21. TRAMADOL [Suspect]
     Active Substance: TRAMADOL
     Indication: Pain
     Dosage: 100 MILLIGRAM, AS NEEDED 2 TABLETS
     Route: 065
  22. METOPROLOL [Suspect]
     Active Substance: METOPROLOL
     Indication: Hypertension
     Dosage: 50 MG, BID/1-0-1/2
     Route: 065
  23. BENSERAZIDE\LEVODOPA [Suspect]
     Active Substance: BENSERAZIDE\LEVODOPA
     Indication: Product used for unknown indication
     Route: 065
  24. TORSEMIDE [Concomitant]
     Active Substance: TORSEMIDE
     Indication: Product used for unknown indication
     Dosage: 5 MG, QD/1-0-0
  25. FUROSEMIDE [Suspect]
     Active Substance: FUROSEMIDE
     Indication: Product used for unknown indication
     Dosage: 40 MILLIGRAM, 3 TABLETS EVERY 2 DAYS
     Route: 065
  26. QUETIAPINE [Concomitant]
     Active Substance: QUETIAPINE
     Indication: Product used for unknown indication
     Dosage: 25 MG, QD
  27. HYDROXYZINE HYDROCHLORIDE [Suspect]
     Active Substance: HYDROXYZINE HYDROCHLORIDE
     Dosage: AS NECASSARY, USUALLY 2 X /24 H
     Route: 065
  28. DEXTROSE\NIKETHAMIDE [Suspect]
     Active Substance: DEXTROSE\NIKETHAMIDE
  29. HYDROXYZINE HYDROCHLORIDE [Concomitant]
     Active Substance: HYDROXYZINE HYDROCHLORIDE
     Indication: Product used for unknown indication
  30. POTASSIUM CHLORIDE [Suspect]
     Active Substance: POTASSIUM CHLORIDE
     Dosage: 2 DOSAGE FORMS DAILY; 1 TABLET (391 K PLUS) EVERY 2 DAYS (1 DOSAGE FORMS,1 IN 2 D)
     Route: 065
  31. ZOLPIDEM [Suspect]
     Active Substance: ZOLPIDEM TARTRATE
     Dosage: 10 MG, 1X PER DAY
  32. INSULIN NOS [Concomitant]
     Active Substance: INSULIN NOS
     Indication: Blood glucose abnormal
     Dosage: DAILY
     Route: 065
  33. BETAHISTINE [Suspect]
     Active Substance: BETAHISTINE
     Indication: Product used for unknown indication
     Dosage: 24 MG, QD/0-1-0
     Route: 065
  34. ACETAMINOPHEN [Suspect]
     Active Substance: ACETAMINOPHEN
     Indication: Product used for unknown indication
     Dosage: 500 MG, QD/0-0-1
     Route: 065
  35. ACETAMINOPHEN [Suspect]
     Active Substance: ACETAMINOPHEN
     Dosage: 500 MG, BID/1-0-1
     Route: 065
  36. ATORVASTATIN CALCIUM [Suspect]
     Active Substance: ATORVASTATIN CALCIUM
     Dosage: 1 DF, DAILY
     Route: 065
  37. GLICLAZIDE [Suspect]
     Active Substance: GLICLAZIDE
     Indication: Product used for unknown indication
     Dosage: 60 MG, TID/1-1-1
     Route: 065
  38. ALLOPURINOL [Suspect]
     Active Substance: ALLOPURINOL
     Indication: Product used for unknown indication
     Dosage: 100 MG, QD/1-0-0
     Route: 065
  39. POTASSIUM CHLORIDE [Suspect]
     Active Substance: POTASSIUM CHLORIDE
     Indication: Product used for unknown indication
     Dosage: 1 DF EVERY 2 DAYS/1 DF EVERY 2 DAYS/391 MG K+
     Route: 065
  40. HYDROCHLOROTHIAZIDE [Suspect]
     Active Substance: HYDROCHLOROTHIAZIDE
     Indication: Product used for unknown indication
     Dosage: 25 MG, QD/1-0-0
     Route: 065
  41. DENOSUMAB [Suspect]
     Active Substance: DENOSUMAB
     Indication: Product used for unknown indication
     Route: 065
  42. ATORVASTATIN [Suspect]
     Active Substance: ATORVASTATIN
     Indication: Product used for unknown indication
     Dosage: 20 MG, QD/0-0-1
     Route: 065
  43. DEXTROSE\NIKETHAMIDE [Suspect]
     Active Substance: DEXTROSE\NIKETHAMIDE
     Indication: Product used for unknown indication
     Dosage: UNK, 1,5 + 125 MG, AD HOC
     Route: 065
  44. ZOLPIDEM [Suspect]
     Active Substance: ZOLPIDEM TARTRATE
  45. HYDROXYZINE [Suspect]
     Active Substance: HYDROXYZINE HYDROCHLORIDE
     Indication: Product used for unknown indication
     Dosage: 25 MILLIGRAM, AS NEEDED, AVERAGE 2 X /24 H
     Route: 065
  46. HYDROTALCITE [Concomitant]
     Active Substance: HYDROTALCITE
     Indication: Abdominal pain upper
     Dosage: 1
     Route: 065
  47. ACARBOSE [Concomitant]
     Active Substance: ACARBOSE
     Indication: Hyperglycaemia
     Route: 048
  48. ISOSORBIDE MONONITRATE [Suspect]
     Active Substance: ISOSORBIDE MONONITRATE
     Indication: Product used for unknown indication
     Dosage: 50 MILLIGRAM, AS NEEDED, AVERAGE 1 -2 X/24
     Route: 065
  49. HYDROXYZINE [Suspect]
     Active Substance: HYDROXYZINE HYDROCHLORIDE
     Indication: Product used for unknown indication
  50. VORTIOXETINE [Concomitant]
     Active Substance: VORTIOXETINE
     Indication: Product used for unknown indication
     Dosage: 10 MG, QD/0-0-1
  51. RUFLOXACIN [Concomitant]
     Active Substance: RUFLOXACIN
     Indication: Nasopharyngitis
     Dosage: 1 DOSAGE FORM, BID
     Route: 048
  52. BETAHISTINE HYDROCHLORIDE [Interacting]
     Active Substance: BETAHISTINE HYDROCHLORIDE
     Indication: Product used for unknown indication
     Route: 065
  53. CITALOPRAM [Suspect]
     Active Substance: CITALOPRAM HYDROBROMIDE
     Indication: Depression
     Dosage: 40 MG, QD/1-0-0/DRUG LIST AT THE ADMISSION
     Route: 065
  54. METOCLOPRAMIDE [Suspect]
     Active Substance: METOCLOPRAMIDE
     Indication: Constipation
     Dosage: 10 MILLIGRAM, 2 TABLETS AS NEEDED, IN CASE OF CONSTIPATION, BUT FOR MANY MONTHS
     Route: 065
  55. POTASSIUM CHLORIDE [Suspect]
     Active Substance: POTASSIUM CHLORIDE
     Dosage: 1 TABLET (391 K +) EVERY 2 DAYS
  56. ISOSORBIDE MONONITRATE [Suspect]
     Active Substance: ISOSORBIDE MONONITRATE
     Indication: Coronary artery disease
     Dosage: 1 DOSAGE FORM, QD (ISOSORBIDE MONONITRATE: 60.0MG ); MODIFIED-RELEASE CAPSULE, HARD
     Route: 048
  57. SPIRONOLACTONE [Suspect]
     Active Substance: SPIRONOLACTONE
     Indication: Product used for unknown indication
     Dosage: 100 MG, QD/0-1-0
     Route: 065
  58. OMEPRAZOLE [Suspect]
     Active Substance: OMEPRAZOLE
     Indication: Product used for unknown indication
  59. OMEPRAZOLE [Suspect]
     Active Substance: OMEPRAZOLE
     Indication: Duodenal ulcer

REACTIONS (38)
  - Deep vein thrombosis [Unknown]
  - Melaena [Unknown]
  - Drug ineffective [Unknown]
  - Motor dysfunction [Recovering/Resolving]
  - Drug interaction [Unknown]
  - Neuroglycopenia [Unknown]
  - Syncope [Recovering/Resolving]
  - Medication error [Unknown]
  - Urinary retention [Unknown]
  - Micturition disorder [Unknown]
  - Pancreatitis acute [Unknown]
  - Labelled drug-drug interaction issue [Recovered/Resolved]
  - Abdominal pain upper [Unknown]
  - Cognitive disorder [Unknown]
  - Sedation [Recovering/Resolving]
  - Gastrointestinal disorder [Unknown]
  - Hyponatraemia [Unknown]
  - Hyperkalaemia [Unknown]
  - Coronary artery disease [Unknown]
  - Hypoglycaemia [Recovered/Resolved]
  - Peripheral circulatory failure [Unknown]
  - Fall [Recovering/Resolving]
  - Peptic ulcer [Unknown]
  - Gastric polyps [Unknown]
  - Dysuria [Unknown]
  - Muscle rigidity [Unknown]
  - Pruritus [Unknown]
  - Bradykinesia [Unknown]
  - Multiple drug therapy [Unknown]
  - Dizziness [Recovering/Resolving]
  - Hypotension [Recovering/Resolving]
  - Blood pressure decreased [Unknown]
  - Osteoporosis [Unknown]
  - Mobility decreased [Recovering/Resolving]
  - Nausea [Unknown]
  - Stupor [Unknown]
  - Hiatus hernia [Unknown]
  - Atrioventricular block first degree [Recovering/Resolving]

NARRATIVE: CASE EVENT DATE: 20210101
